FAERS Safety Report 9522325 (Version 1)
Quarter: 2013Q1

REPORT INFORMATION
  Report Type: Spontaneous
  Country: US (occurrence: None)
  Receive Date: 20130305
  Receipt Date: 20130305
  Transmission Date: 20140127
  Serious: Yes (Hospitalization, Other)
  Sender: FDA-Public Use
  Company Number: 163-21880-12063748

PATIENT
  Age: 92 Year
  Sex: Male

DRUGS (3)
  1. REVLIMID [Suspect]
     Indication: PLASMA CELL MYELOMA
     Dosage: DAILY FOR 21 DAYS, 7 DAYS OFF, PO
     Route: 048
     Dates: start: 20120531
  2. PROCRIT [Concomitant]
  3. ASPIRIN (ACETYLSALICYLIC ACID) [Concomitant]

REACTIONS (5)
  - Vomiting [None]
  - Diarrhoea [None]
  - Dehydration [None]
  - Nausea [None]
  - Abdominal pain upper [None]
